FAERS Safety Report 8333547-6 (Version None)
Quarter: 2012Q2

REPORT INFORMATION
  Report Type: 
  Country: None (occurrence: None)
  Receive Date: 20120503
  Receipt Date: 20101118
  Transmission Date: 20120825
  Serious: No
  Sender: FDA-Public Use
  Company Number: US-TEVA-2010005917

PATIENT
  Sex: Male
  Weight: 137.11 kg

DRUGS (1)
  1. NUVIGIL [Suspect]
     Indication: APNOEA
     Dosage: 150 MILLIGRAM;
     Route: 048

REACTIONS (4)
  - WEIGHT DECREASED [None]
  - INITIAL INSOMNIA [None]
  - HEADACHE [None]
  - THERAPEUTIC RESPONSE UNEXPECTED [None]
